FAERS Safety Report 18570728 (Version 2)
Quarter: 2021Q1

REPORT INFORMATION
  Report Type: Spontaneous
  Country: IT (occurrence: IT)
  Receive Date: 20201202
  Receipt Date: 20210113
  Transmission Date: 20210419
  Serious: Yes (Death)
  Sender: FDA-Public Use
  Company Number: IT-TEVA-2020-IT-1854112

PATIENT
  Age: 53 Year
  Sex: Male

DRUGS (3)
  1. AMLODIPINE [Concomitant]
     Active Substance: AMLODIPINE BESYLATE
     Indication: DRUG ABUSE
     Dosage: 10 DF
     Route: 048
     Dates: start: 20190105, end: 20190105
  2. TRAMADOL HYDROCHLORIDE. [Suspect]
     Active Substance: TRAMADOL HYDROCHLORIDE
     Indication: DRUG ABUSE
     Dosage: 1 DF
     Route: 042
     Dates: start: 20190105, end: 20190105
  3. KETOROLAC [Suspect]
     Active Substance: KETOROLAC TROMETHAMINE
     Indication: DRUG ABUSE
     Dosage: 1 DF
     Route: 042
     Dates: start: 20190105, end: 20190105

REACTIONS (4)
  - Loss of consciousness [Fatal]
  - Drug abuse [Fatal]
  - Tachycardia [Fatal]
  - Sedation [Fatal]

NARRATIVE: CASE EVENT DATE: 20190105
